FAERS Safety Report 8251663-4 (Version None)
Quarter: 2012Q2

REPORT INFORMATION
  Report Type: 
  Country: None (occurrence: None)
  Receive Date: 20120402
  Receipt Date: 20120125
  Transmission Date: 20120825
  Serious: No
  Sender: FDA-Public Use
  Company Number: US-ABBOTT-12P-163-0898860-00

PATIENT
  Sex: Male
  Weight: 74.002 kg

DRUGS (8)
  1. LEVOTHYROXINE SODIUM [Concomitant]
     Indication: THYROID DISORDER
  2. NORPACE [Concomitant]
     Indication: CARDIAC DISORDER
  3. LIMBITROL [Concomitant]
     Indication: MUSCLE RELAXANT THERAPY
  4. ANDROGEL [Suspect]
     Indication: BLOOD TESTOSTERONE DECREASED
     Dosage: 2 PUMPS PER DAY
     Dates: start: 20110501
  5. PROCARDIA XL [Concomitant]
     Indication: CARDIAC DISORDER
  6. LASIX [Concomitant]
     Indication: FLUID IMBALANCE
  7. FLOMAX [Concomitant]
     Indication: PROSTATIC DISORDER
  8. ALLOPURINOL [Concomitant]
     Indication: GOUT

REACTIONS (8)
  - NIGHT SWEATS [None]
  - FEELING HOT [None]
  - BLISTER [None]
  - HOT FLUSH [None]
  - ERYTHEMA [None]
  - INSOMNIA [None]
  - FATIGUE [None]
  - BLOOD TESTOSTERONE DECREASED [None]
